FAERS Safety Report 16035640 (Version 2)
Quarter: 2019Q1

REPORT INFORMATION
  Report Type: Report from Study
  Country: US (occurrence: US)
  Receive Date: 20190305
  Receipt Date: 20190319
  Transmission Date: 20190418
  Serious: Yes (Death, Life-Threatening, Hospitalization)
  Sender: FDA-Public Use
  Company Number: US-ROCHE-2193863

PATIENT
  Age: 55 Year
  Sex: Male
  Weight: 78.1 kg

DRUGS (2)
  1. RO 6870810 (BET INHIBITOR) [Suspect]
     Active Substance: RO-6870810
     Indication: DIFFUSE LARGE B-CELL LYMPHOMA
     Dosage: DATE OF MOST RECENT DOSE OF RO6870810 PRIOR TO SAE ONSET: 25/SEP/2018 (10.51)?DATE OF MOST RECENT DO
     Route: 058
     Dates: start: 20180925
  2. VENETOCLAX. [Suspect]
     Active Substance: VENETOCLAX
     Indication: DIFFUSE LARGE B-CELL LYMPHOMA
     Dosage: FOR 21 DAYS?DATE OF MOST RECENT OF VENETOCLAX ADMINISTERED PRIOR TO SAE ONSET: 25/SEP/2018 (10.48)?D
     Route: 048
     Dates: start: 20180925

REACTIONS (2)
  - Diarrhoea [Not Recovered/Not Resolved]
  - Sepsis [Fatal]

NARRATIVE: CASE EVENT DATE: 20180929
